FAERS Safety Report 8233612-8 (Version None)
Quarter: 2012Q1

REPORT INFORMATION
  Report Type: 
  Country: None (occurrence: None)
  Receive Date: 20120326
  Receipt Date: 20120316
  Transmission Date: 20120608
  Serious: Yes (Other)
  Sender: FDA-Public Use
  Company Number: PHFR2012GB000641

PATIENT
  Sex: Female

DRUGS (2)
  1. CLOZARIL [Suspect]
     Indication: SCHIZOPHRENIA
     Dosage: UNK UKN, UNK
     Route: 048
     Dates: start: 20060814, end: 20120117
  2. MIRTAZAPINE [Concomitant]

REACTIONS (10)
  - SCRATCH [None]
  - WHITE BLOOD CELL COUNT DECREASED [None]
  - NEUTROPHIL COUNT DECREASED [None]
  - ROAD TRAFFIC ACCIDENT [None]
  - TOOTHACHE [None]
  - INJURY [None]
  - NEUTROPENIA [None]
  - TOOTH INFECTION [None]
  - PLATELET COUNT DECREASED [None]
  - EOSINOPHIL COUNT DECREASED [None]
